FAERS Safety Report 15530589 (Version 1)
Quarter: 2018Q4

REPORT INFORMATION
  Report Type: Spontaneous
  Country: AU (occurrence: AU)
  Receive Date: 20181018
  Receipt Date: 20181018
  Transmission Date: 20190205
  Serious: Yes (Life-Threatening)
  Sender: FDA-Public Use
  Company Number: PHHY2018AU008067

PATIENT
  Sex: Female

DRUGS (1)
  1. DESFERAL [Suspect]
     Active Substance: DEFEROXAMINE MESYLATE
     Indication: CONGENITAL ANAEMIA
     Dosage: 2 G, QD (PER DAY)
     Route: 058
     Dates: start: 2004

REACTIONS (4)
  - Body mass index decreased [Unknown]
  - Liver iron concentration increased [Unknown]
  - Incorrect route of product administration [Unknown]
  - Drug intolerance [Unknown]
